FAERS Safety Report 15842748 (Version 1)
Quarter: 2018Q4

REPORT INFORMATION
  Report Type: Spontaneous
  Country: US (occurrence: US)
  Receive Date: 20181224
  Receipt Date: 20181224
  Transmission Date: 20190205
  Serious: No
  Sender: FDA-Public Use
  Company Number: None

PATIENT
  Age: 61 Year
  Sex: Female

DRUGS (1)
  1. FASLODEX [Suspect]
     Active Substance: FULVESTRANT
     Indication: BREAST CANCER
     Dosage: ?          OTHER FREQUENCY:OTHER;?
     Route: 030
     Dates: start: 201812

REACTIONS (6)
  - Fatigue [None]
  - Migraine [None]
  - Vomiting [None]
  - Nausea [None]
  - Decreased appetite [None]
  - Asthenia [None]

NARRATIVE: CASE EVENT DATE: 20181224
